FAERS Safety Report 10436326 (Version 1)
Quarter: 2014Q3

REPORT INFORMATION
  Report Type: Spontaneous
  Country: US (occurrence: None)
  Receive Date: 20140905
  Receipt Date: 20140905
  Transmission Date: 20150326
  Serious: Yes (Other)
  Sender: FDA-Public Use
  Company Number: None

PATIENT
  Age: 36 Year
  Sex: Male
  Weight: 159.89 kg

DRUGS (2)
  1. HUMALOG KWIKPEN [Suspect]
     Active Substance: INSULIN LISPRO
     Indication: DIABETIC NEUROPATHY
     Dosage: 5 UNITS TIDWF + SS, SQ
     Route: 058
     Dates: start: 20140819, end: 20140825
  2. LEVEMIR [Suspect]
     Active Substance: INSULIN DETEMIR
     Indication: DIABETIC NEUROPATHY
     Dosage: 20 UNITS
     Route: 058
     Dates: start: 20140819, end: 20140822

REACTIONS (4)
  - Confusional state [None]
  - Lip discolouration [None]
  - Urticaria [None]
  - Swelling face [None]

NARRATIVE: CASE EVENT DATE: 20140822
